FAERS Safety Report 6928828-4 (Version None)
Quarter: 2010Q3

REPORT INFORMATION
  Report Type: 
  Country: None (occurrence: None)
  Receive Date: 20100817
  Receipt Date: 20100719
  Transmission Date: 20110219
  Serious: Yes (Hospitalization, Other)
  Sender: FDA-Public Use
  Company Number: PHEH2007US14099

PATIENT
  Sex: Male

DRUGS (48)
  1. AREDIA [Suspect]
     Dosage: 90 MG, QMO
  2. ZOMETA [Suspect]
     Dosage: UNK
     Dates: end: 20040401
  3. FAMVIR                                  /NET/ [Concomitant]
  4. BACTRIM [Concomitant]
  5. DIFLUCAN [Concomitant]
  6. DEXAMETHASONE [Concomitant]
  7. OXYCONTIN [Concomitant]
  8. OXYCODONE [Concomitant]
  9. ATIVAN [Concomitant]
  10. ALLOPURINOL [Concomitant]
  11. ZANTAC [Concomitant]
  12. COUMADIN [Concomitant]
     Indication: THROMBOSIS PROPHYLAXIS
  13. VINCRISTINE [Concomitant]
  14. DOXORUBICIN HCL [Concomitant]
  15. SENOKOT                                 /UNK/ [Concomitant]
  16. PREDNISONE [Concomitant]
  17. LIPITOR [Concomitant]
  18. TRAZODONE HCL [Concomitant]
  19. CLONAZEPAM [Concomitant]
  20. PENICILLIN [Concomitant]
  21. PREVACID [Concomitant]
  22. BEXTRA [Concomitant]
  23. CEPHALEXIN [Concomitant]
  24. ZOCOR [Concomitant]
  25. PROZAC [Concomitant]
  26. CHLORHEXIDINE GLUCONATE [Concomitant]
  27. MAGNESIUM OXIDE [Concomitant]
  28. LORTAB [Concomitant]
  29. CYCLOPHOSPHAMIDE [Concomitant]
  30. CYTOXAN [Concomitant]
  31. KYTRIL [Concomitant]
  32. NEURONTIN [Concomitant]
  33. CEFEPIME [Concomitant]
  34. MYCELEX [Concomitant]
  35. NEUPOGEN [Concomitant]
  36. RESTORIL [Concomitant]
  37. KLONOPIN [Concomitant]
  38. LACTULOSE [Concomitant]
  39. CELEBREX [Concomitant]
  40. ZITHROMAX [Suspect]
  41. LEVAQUIN [Concomitant]
  42. DECADRON [Concomitant]
  43. MELPHALAN [Concomitant]
  44. PENICILLIN ^GRUNENTHAL^ [Concomitant]
  45. AUGMENTIN '125' [Concomitant]
  46. FOLIC ACID [Concomitant]
  47. FERROUS SULFATE [Concomitant]
  48. CALCIUM WITH VITAMIN D [Concomitant]

REACTIONS (38)
  - ABDOMINAL DISTENSION [None]
  - ABDOMINAL PAIN [None]
  - ANAEMIA [None]
  - ANXIETY [None]
  - BACTERAEMIA [None]
  - BONE DISORDER [None]
  - CLOSTRIDIUM DIFFICILE COLITIS [None]
  - DEBRIDEMENT [None]
  - DEEP VEIN THROMBOSIS [None]
  - DEFORMITY [None]
  - DYSPNOEA [None]
  - EMOTIONAL DISTRESS [None]
  - FATIGUE [None]
  - FEBRILE NEUTROPENIA [None]
  - GASTROOESOPHAGEAL REFLUX DISEASE [None]
  - HIP ARTHROPLASTY [None]
  - HYPERCHOLESTEROLAEMIA [None]
  - HYPERLIPIDAEMIA [None]
  - INFECTION [None]
  - INJURY [None]
  - JAW OPERATION [None]
  - NEPHROLITHIASIS [None]
  - NEUROPATHY PERIPHERAL [None]
  - OSTEOARTHRITIS [None]
  - OSTEOMYELITIS [None]
  - OSTEONECROSIS [None]
  - OSTEONECROSIS OF JAW [None]
  - PAIN [None]
  - PNEUMONIA [None]
  - PRIMARY SEQUESTRUM [None]
  - PROSTATOMEGALY [None]
  - PYOGENIC GRANULOMA [None]
  - RIB FRACTURE [None]
  - SCIATICA [None]
  - SEQUESTRECTOMY [None]
  - TOOTH EXTRACTION [None]
  - VIRAL UPPER RESPIRATORY TRACT INFECTION [None]
  - WEIGHT DECREASED [None]
